FAERS Safety Report 5347080-7 (Version None)
Quarter: 2007Q2

REPORT INFORMATION
  Report Type: 
  Country: None (occurrence: None)
  Receive Date: 20070604
  Receipt Date: 20070521
  Transmission Date: 20071010
  Serious: Yes (Other)
  Sender: FDA-Public Use
  Company Number: 2007BI011074

PATIENT
  Age: 43 Year
  Sex: Male

DRUGS (2)
  1. NATALIZUMAB [Suspect]
     Indication: MULTIPLE SCLEROSIS
     Dosage: 300 MG QM IV
     Route: 042
     Dates: start: 20061026, end: 20070301
  2. SPIRULINA [Concomitant]

REACTIONS (12)
  - AUTOIMMUNE HEPATITIS [None]
  - BACK PAIN [None]
  - BLOOD BILIRUBIN INCREASED [None]
  - CALCULUS BLADDER [None]
  - FALL [None]
  - FATIGUE [None]
  - HEPATITIS ACUTE [None]
  - NEPHROLITHIASIS [None]
  - PELVI-URETERIC OBSTRUCTION [None]
  - PROTHROMBIN TIME PROLONGED [None]
  - SERUM FERRITIN INCREASED [None]
  - WEIGHT DECREASED [None]
